FAERS Safety Report 6876802-9 (Version None)
Quarter: 2010Q3

REPORT INFORMATION
  Report Type: 
  Country: None (occurrence: None)
  Receive Date: 20100727
  Receipt Date: 20100715
  Transmission Date: 20110219
  Serious: Yes (Other)
  Sender: FDA-Public Use
  Company Number: PHFR2010GB01084

PATIENT
  Sex: Female

DRUGS (5)
  1. ZOMETA [Suspect]
     Indication: BREAST CANCER
     Dosage: UNK
     Route: 042
     Dates: start: 20070601, end: 20080701
  2. ANTIBIOTICS [Suspect]
     Indication: TOOTH EXTRACTION
  3. ANTIBIOTICS [Suspect]
     Indication: IMPAIRED HEALING
  4. ARIMIDEX [Concomitant]
     Indication: BREAST CANCER
     Dosage: 1MG
     Route: 048
     Dates: start: 20070601
  5. ADCAL-D3 [Concomitant]
     Indication: BREAST CANCER
     Dosage: ONE TABLET
     Route: 048
     Dates: start: 20070601

REACTIONS (9)
  - APHAGIA [None]
  - ERYTHEMA [None]
  - GINGIVAL INFECTION [None]
  - GINGIVITIS [None]
  - IMPAIRED HEALING [None]
  - OSTEONECROSIS OF JAW [None]
  - PAIN [None]
  - SWELLING [None]
  - TOOTH EXTRACTION [None]
